FAERS Safety Report 23581665 (Version 1)
Quarter: 2024Q1

REPORT INFORMATION
  Report Type: Spontaneous
  Country: CZ (occurrence: CZ)
  Receive Date: 20240229
  Receipt Date: 20240229
  Transmission Date: 20240409
  Serious: Yes (Life-Threatening, Hospitalization, Disabling, Other)
  Sender: FDA-Public Use
  Company Number: None

PATIENT
  Age: 74 Year
  Sex: Male
  Weight: 57 kg

DRUGS (4)
  1. LEUCOVORIN [Suspect]
     Active Substance: LEUCOVORIN\LEUCOVORIN CALCIUM
     Indication: Gastric cancer
     Dosage: 5 CYCLES OF FOLFOX, 4 WITH NIVOLUMAB
     Route: 042
     Dates: start: 20230919, end: 20231208
  2. FLUOROURACIL [Suspect]
     Active Substance: FLUOROURACIL
     Indication: Gastric cancer
     Dosage: 5 CYCLES FOLFOX, IN COMBINATION WITH NIVOLUMAB (4 CYCLES), 5-FLUOROURACIL EBEWE
     Route: 042
     Dates: start: 20230919, end: 20231208
  3. OXALIPLATIN [Suspect]
     Active Substance: OXALIPLATIN
     Indication: Gastric cancer
     Dosage: 5 CYCLES FOLFOX, IN COMBINATION WITH NIVOLUMAB (4 CYCLES)
     Route: 042
     Dates: start: 20230919, end: 20231208
  4. OPDIVO [Suspect]
     Active Substance: NIVOLUMAB
     Indication: Gastric cancer
     Dosage: 4 CYCLES, EVERY TWO WEEKS WITH FOLFOX
     Route: 042
     Dates: start: 20230919, end: 20231110

REACTIONS (12)
  - Neutropenia [Unknown]
  - Decreased appetite [Unknown]
  - Fatigue [Unknown]
  - Weight decreased [Unknown]
  - Leukopenia [Unknown]
  - Thrombocytopenia [Unknown]
  - Performance status decreased [Unknown]
  - Liver disorder [Unknown]
  - Thrombocytopenia [Unknown]
  - Haematemesis [Unknown]
  - Anaemia [Unknown]
  - Melaena [Unknown]

NARRATIVE: CASE EVENT DATE: 20231201
